FAERS Safety Report 4276939-7 (Version None)
Quarter: 2004Q1

REPORT INFORMATION
  Report Type: 
  Country: None (occurrence: None)
  Receive Date: 20040120
  Receipt Date: 20040102
  Transmission Date: 20041129
  Serious: Yes (Other)
  Sender: FDA-Public Use
  Company Number: 168864

PATIENT
  Age: 46 Year
  Sex: Female
  Weight: 72.1219 kg

DRUGS (6)
  1. AVONEX [Suspect]
     Indication: MULTIPLE SCLEROSIS
     Dosage: 30 MCG QW IM
     Route: 030
     Dates: start: 20000301
  2. TYLENOL [Concomitant]
  3. NEURONTIN [Concomitant]
  4. ZYRTEC [Concomitant]
  5. ATIVAN [Concomitant]
  6. DARVOCET-N 100 [Concomitant]

REACTIONS (2)
  - BREAST CANCER [None]
  - DEPRESSION [None]
